FAERS Safety Report 7118598-1 (Version None)
Quarter: 2010Q4

REPORT INFORMATION
  Report Type: 
  Country: None (occurrence: None)
  Receive Date: 20101123
  Receipt Date: 20101116
  Transmission Date: 20110411
  Serious: Yes (Death, Other)
  Sender: FDA-Public Use
  Company Number: PHHY2010BE77974

PATIENT
  Age: 33 Year
  Sex: Female
  Weight: 60 kg

DRUGS (5)
  1. DICLOFENAC SODIUM [Suspect]
     Dosage: 1 G, UNK
  2. IBUPROFEN [Interacting]
     Dosage: 8 G, UNK
  3. COLCHICINE [Interacting]
     Dosage: 20 MG, UNK
  4. ATORVASTATIN [Interacting]
     Dosage: 100 MG, UNK
  5. FUROSEMIDE [Interacting]
     Dosage: 400 MG, UNK

REACTIONS (25)
  - ACUTE HEPATIC FAILURE [None]
  - ACUTE LUNG INJURY [None]
  - AMMONIA DECREASED [None]
  - ARRHYTHMIA [None]
  - BRAIN OEDEMA [None]
  - CARDIAC ARREST [None]
  - CONVULSION [None]
  - DIARRHOEA [None]
  - DRUG INTERACTION [None]
  - ENTEROCOLITIS [None]
  - ESCHERICHIA TEST POSITIVE [None]
  - HAEMORRHAGE [None]
  - HYPERAMMONAEMIC ENCEPHALOPATHY [None]
  - HYPERTRIGLYCERIDAEMIA [None]
  - HYPOTENSION [None]
  - HYPOXIA [None]
  - ILEUS [None]
  - LUNG INFILTRATION [None]
  - MULTI-ORGAN FAILURE [None]
  - OVERDOSE [None]
  - PANCYTOPENIA [None]
  - RENAL FAILURE ACUTE [None]
  - RHABDOMYOLYSIS [None]
  - SEPSIS [None]
  - SHOCK HAEMORRHAGIC [None]
